FAERS Safety Report 5492970-8 (Version None)
Quarter: 2007Q4

REPORT INFORMATION
  Report Type: 
  Country: None (occurrence: None)
  Receive Date: 20071023
  Receipt Date: 20071018
  Transmission Date: 20080405
  Serious: Yes (Life-Threatening, Hospitalization)
  Sender: FDA-Public Use
  Company Number: US-BRISTOL-MYERS SQUIBB COMPANY-13947288

PATIENT
  Age: 71 Year
  Sex: Female
  Weight: 45 kg

DRUGS (12)
  1. PACLITAXEL [Suspect]
     Indication: BREAST CANCER
     Dosage: 90MG/M2, FREQUENCY:WEEKLY, INTERVAL:Q3WEEKS,1WK REST, IV
     Route: 042
     Dates: start: 20070807
  2. BEVACIZUMAB [Suspect]
     Indication: BREAST CANCER
     Dosage: 10 MG/KG,FREQUENCY:Q2WEEKS;INTERVAL:Q2WEEKS, IV
     Route: 042
     Dates: start: 20070807
  3. FOLIC ACID [Concomitant]
     Route: 048
     Dates: start: 20010101
  4. TOPROL-XL [Concomitant]
     Route: 048
     Dates: start: 20010101
  5. PLAVIX [Concomitant]
     Route: 048
     Dates: start: 20010101
  6. IMDUR [Concomitant]
     Route: 048
     Dates: start: 20010101
  7. CIMETIDINE [Concomitant]
     Route: 048
     Dates: start: 20010101
  8. OXYCODONE HCL [Concomitant]
     Route: 048
     Dates: start: 20060726
  9. CADUET [Concomitant]
     Route: 048
     Dates: start: 20060823
  10. BENADRYL [Concomitant]
     Route: 048
     Dates: start: 20070713
  11. CODEINE + GUAIFENESIN [Concomitant]
     Route: 048
     Dates: start: 20070719
  12. MEGACE [Concomitant]
     Route: 048
     Dates: start: 20070824

REACTIONS (2)
  - CARDIOMYOPATHY [None]
  - PNEUMONITIS [None]
